FAERS Safety Report 17959574 (Version 3)
Quarter: 2020Q3

REPORT INFORMATION
  Report Type: Spontaneous
  Country: ES (occurrence: ES)
  Receive Date: 20200630
  Receipt Date: 20200710
  Transmission Date: 20201103
  Serious: Yes (Other)
  Sender: FDA-Public Use
  Company Number: ES-ASTRAZENECA-2020SE80896

PATIENT
  Age: 14914 Day
  Sex: Female
  Weight: 54 kg

DRUGS (8)
  1. PACLITAXEL. [Concomitant]
     Active Substance: PACLITAXEL
     Dosage: 175 MG/M2 THREE?WEEKLY AT 75 PERCENTAGE
     Dates: start: 201904
  2. PACLITAXEL. [Concomitant]
     Active Substance: PACLITAXEL
     Dosage: 175 MG/M2 THREE?WEEKLY
     Dates: start: 201506, end: 201510
  3. CARBOPLATIN. [Concomitant]
     Active Substance: CARBOPLATIN
     Dosage: AUC 6
     Dates: start: 201506, end: 201510
  4. GEMCITABINE. [Concomitant]
     Active Substance: GEMCITABINE
  5. CISPLATIN. [Concomitant]
     Active Substance: CISPLATIN
     Dosage: 80 MG/M2
     Dates: start: 201904
  6. LYNPARZA [Suspect]
     Active Substance: OLAPARIB
     Indication: TRANSITIONAL CELL CARCINOMA
     Route: 048
     Dates: start: 20170102, end: 20190418
  7. CARBOPLATIN. [Concomitant]
     Active Substance: CARBOPLATIN
  8. GEMCITABINE. [Concomitant]
     Active Substance: GEMCITABINE
     Dosage: 1000 MG/M2
     Dates: start: 201608

REACTIONS (2)
  - Neurotoxicity [Recovering/Resolving]
  - Rash [Unknown]

NARRATIVE: CASE EVENT DATE: 20170202
